FAERS Safety Report 4425121-9 (Version None)
Quarter: 2004Q3

REPORT INFORMATION
  Report Type: 
  Country: None (occurrence: None)
  Receive Date: 20040813
  Receipt Date: 20040804
  Transmission Date: 20050211
  Serious: Yes (Other)
  Sender: FDA-Public Use
  Company Number: BE-JNJFOC-20040401820

PATIENT
  Sex: Male
  Weight: 118 kg

DRUGS (2)
  1. SPORANOX [Suspect]
     Route: 049
  2. XYZALL [Concomitant]
     Route: 065

REACTIONS (6)
  - ALANINE AMINOTRANSFERASE INCREASED [None]
  - EOSINOPHIL COUNT INCREASED [None]
  - GENERALISED ERYTHEMA [None]
  - INSOMNIA [None]
  - PRURIGO [None]
  - TRANSAMINASES INCREASED [None]
